FAERS Safety Report 13309659 (Version 1)
Quarter: 2017Q1

REPORT INFORMATION
  Report Type: Spontaneous
  Country: FR (occurrence: FR)
  Receive Date: 20170309
  Receipt Date: 20170309
  Transmission Date: 20170428
  Serious: Yes (Hospitalization, Other)
  Sender: FDA-Public Use
  Company Number: FR-PFIZER INC-2017097840

PATIENT
  Sex: Male

DRUGS (3)
  1. XANAX [Suspect]
     Active Substance: ALPRAZOLAM
     Indication: DEPRESSION
     Dosage: 0.5 MG, 3X/DAY
     Route: 064
  2. METHADONE HYDROCHLORIDE. [Suspect]
     Active Substance: METHADONE HYDROCHLORIDE
     Indication: DRUG DEPENDENCE
     Dosage: 80 MG, 1X/DAY
     Route: 064
  3. SYNTOCINON [Concomitant]
     Active Substance: OXYTOCIN
     Indication: LABOUR INDUCTION
     Dosage: UNK
     Dates: start: 20150317

REACTIONS (8)
  - Poor sucking reflex [Unknown]
  - Foetal growth restriction [Recovered/Resolved]
  - Foetal heart rate disorder [Recovered/Resolved]
  - Hypertonia neonatal [Unknown]
  - Withdrawal syndrome [Recovered/Resolved]
  - Tremor [Unknown]
  - Hypoventilation neonatal [Unknown]
  - Maternal exposure during pregnancy [Unknown]

NARRATIVE: CASE EVENT DATE: 2015
